FAERS Safety Report 9788377 (Version 1)
Quarter: 2013Q4

REPORT INFORMATION
  Report Type: Spontaneous
  Country: DE (occurrence: DE)
  Receive Date: 20131230
  Receipt Date: 20131230
  Transmission Date: 20140711
  Serious: Yes (Other)
  Sender: FDA-Public Use
  Company Number: DE-PERRIGO-13DE013058

PATIENT
  Sex: Female

DRUGS (2)
  1. NAPROXEN RX 500MG 631 [Suspect]
     Indication: SPONDYLITIS
     Dosage: 1000 MG, QD
     Route: 048
  2. INFLIXIMAB [Suspect]
     Indication: SPONDYLITIS
     Dosage: 5 MG/KG, 0,2,6,12,18,24 WEEKS
     Route: 042

REACTIONS (6)
  - Foetal distress syndrome [Recovered/Resolved]
  - Uterine hypotonus [Unknown]
  - Exposure during pregnancy [Unknown]
  - Maternal exposure during pregnancy [None]
  - Pregnancy [None]
  - Caesarean section [None]
